FAERS Safety Report 12791881 (Version 1)
Quarter: 2016Q3

REPORT INFORMATION
  Report Type: Spontaneous
  Country: IE (occurrence: IE)
  Receive Date: 20160929
  Receipt Date: 20160929
  Transmission Date: 20161109
  Serious: No
  Sender: FDA-Public Use
  Company Number: IE-TOLMAR, INC.-2015IE008714

PATIENT
  Age: 61 Year
  Sex: Male

DRUGS (1)
  1. ELIGARD [Suspect]
     Active Substance: LEUPROLIDE ACETATE
     Indication: PROSTATE CANCER
     Dosage: UNK, Q3MONTHS
     Route: 065

REACTIONS (2)
  - Wrong technique in product usage process [Unknown]
  - Injection site abscess [Recovering/Resolving]

NARRATIVE: CASE EVENT DATE: 20150602
